FAERS Safety Report 4535663-3 (Version None)
Quarter: 2004Q4

REPORT INFORMATION
  Report Type: 
  Country: None (occurrence: None)
  Receive Date: 20041223
  Receipt Date: 20031023
  Transmission Date: 20050328
  Serious: Yes (Other)
  Sender: FDA-Public Use
  Company Number: US-GLAXOSMITHKLINE-A0431397A

PATIENT
  Age: 42 Year
  Sex: Female

DRUGS (3)
  1. FLONASE [Suspect]
     Dosage: 2SPR SINGLE DOSE
     Route: 045
     Dates: start: 20031022, end: 20031022
  2. DEPO-MEDROL [Suspect]
     Indication: ILL-DEFINED DISORDER
     Route: 042
     Dates: start: 20031022
  3. ALLEGRA [Concomitant]

REACTIONS (6)
  - CATARACT [None]
  - CILIARY BODY DISORDER [None]
  - CONJUNCTIVAL HYPERAEMIA [None]
  - CORNEAL EPITHELIUM DISORDER [None]
  - CORNEAL OPACITY [None]
  - INTRAOCULAR PRESSURE TEST ABNORMAL [None]
